FAERS Safety Report 9036156 (Version 1)
Quarter: 2013Q1

REPORT INFORMATION
  Report Type: Spontaneous
  Country: DK (occurrence: None)
  Receive Date: 20130116
  Receipt Date: 20130116
  Transmission Date: 20140127
  Serious: Yes (Death)
  Sender: FDA-Public Use
  Company Number: 2013MA000447

PATIENT
  Age: 64 Year
  Sex: Male

DRUGS (2)
  1. MIRTAZAPINE TABLETS [Suspect]
     Indication: DEPRESSION
     Route: 048
  2. CITALOPRAM [Concomitant]

REACTIONS (2)
  - Completed suicide [None]
  - Mental disorder [None]
